FAERS Safety Report 7684950-9 (Version None)
Quarter: 2011Q3

REPORT INFORMATION
  Report Type: 
  Country: None (occurrence: None)
  Receive Date: 20110816
  Receipt Date: 20110804
  Transmission Date: 20111222
  Serious: Yes (Hospitalization)
  Sender: FDA-Public Use
  Company Number: PHFR2011IE00553

PATIENT
  Sex: Male

DRUGS (1)
  1. CLOZAPINE [Suspect]
     Indication: SCHIZOPHRENIA
     Dosage: 325 MG MANE, 100MG NOCTE
     Route: 048
     Dates: start: 20101220

REACTIONS (3)
  - PULMONARY EMBOLISM [None]
  - PNEUMONIA [None]
  - RESPIRATORY DISORDER [None]
